FAERS Safety Report 9459631 (Version 1)
Quarter: 2013Q3

REPORT INFORMATION
  Report Type: Report from Study
  Country: GB (occurrence: GB)
  Receive Date: 20130815
  Receipt Date: 20130815
  Transmission Date: 20140515
  Serious: Yes (Hospitalization)
  Sender: FDA-Public Use
  Company Number: GB-VERTEX PHARMACEUTICALS INC-2013-008763

PATIENT
  Age: 45 Year
  Sex: Male

DRUGS (3)
  1. VX-950 (TELAPREVIR) [Suspect]
     Indication: HEPATITIS C
     Dosage: 750 MG, TID
     Route: 048
     Dates: start: 20130611
  2. PEGINTERFERON ALFA [Suspect]
     Indication: HEPATITIS C
     Dosage: UNK UNK, QW
     Route: 058
     Dates: start: 20130611
  3. RIBAVIRIN [Suspect]
     Indication: HEPATITIS C
     Dosage: UNK, BID
     Route: 048
     Dates: start: 20130611

REACTIONS (2)
  - Dehydration [Recovered/Resolved]
  - Hallucination [Recovered/Resolved]
